FAERS Safety Report 21291786 (Version 1)
Quarter: 2022Q3

REPORT INFORMATION
  Report Type: Spontaneous
  Country: FR (occurrence: FR)
  Receive Date: 20220903
  Receipt Date: 20220903
  Transmission Date: 20221026
  Serious: Yes (Hospitalization, Other)
  Sender: FDA-Public Use
  Company Number: None

PATIENT
  Age: 47 Year
  Sex: Female
  Weight: 56 kg

DRUGS (6)
  1. ENANTONE LP [Suspect]
     Active Substance: LEUPROLIDE ACETATE
     Indication: Menometrorrhagia
     Dosage: 3.75 MILLIGRAM
     Route: 065
     Dates: start: 20220628
  2. ESTRADIOL [Suspect]
     Active Substance: ESTRADIOL
     Indication: Menometrorrhagia
     Dosage: 2 DOSAGE FORM, QD
     Route: 065
     Dates: start: 20220628, end: 2022
  3. ESTRADIOL [Suspect]
     Active Substance: ESTRADIOL
     Dosage: UNK UNK, QD
     Route: 065
     Dates: start: 20220628
  4. TRANEXAMIC ACID [Suspect]
     Active Substance: TRANEXAMIC ACID
     Indication: Menometrorrhagia
     Dosage: 1 GRAM, Q8HR
     Route: 048
     Dates: start: 20220618, end: 20220630
  5. DIENOGEST [Suspect]
     Active Substance: DIENOGEST
     Indication: Menometrorrhagia
     Dosage: 2 MILLIGRAM, QD
     Route: 065
     Dates: start: 20220618, end: 20220630
  6. DIENOGEST\ETHINYL ESTRADIOL [Suspect]
     Active Substance: DIENOGEST\ETHINYL ESTRADIOL
     Indication: Menometrorrhagia
     Dosage: 2 MILLIGRAM, QD
     Route: 065
     Dates: start: 20220618, end: 20220630

REACTIONS (2)
  - Pulmonary embolism [Recovering/Resolving]
  - Deep vein thrombosis [Unknown]

NARRATIVE: CASE EVENT DATE: 20220705
